FAERS Safety Report 4350912-2 (Version None)
Quarter: 2004Q2

REPORT INFORMATION
  Report Type: 
  Country: None (occurrence: None)
  Receive Date: 20040430
  Receipt Date: 20040421
  Transmission Date: 20050107
  Serious: Yes (Hospitalization, Other)
  Sender: FDA-Public Use
  Company Number: MX-GLAXOSMITHKLINE-A0509086A

PATIENT
  Age: 47 Year
  Sex: Female

DRUGS (1)
  1. ZINNAT [Suspect]
     Dosage: 500MG TWICE PER DAY
     Route: 048
     Dates: start: 20040415, end: 20040418

REACTIONS (5)
  - ABDOMINAL PAIN [None]
  - CHOLECYSTITIS ACUTE [None]
  - EYELID OEDEMA [None]
  - FACE OEDEMA [None]
  - OEDEMA PERIPHERAL [None]
